FAERS Safety Report 21480780 (Version 1)
Quarter: 2022Q4

REPORT INFORMATION
  Report Type: Report from Study
  Country: CL (occurrence: CL)
  Receive Date: 20221019
  Receipt Date: 20221019
  Transmission Date: 20230113
  Serious: Yes (Hospitalization, Other)
  Sender: FDA-Public Use
  Company Number: CL-PFIZER INC-PV202200050845

PATIENT
  Age: 32 Year
  Sex: Female
  Weight: 59.2 kg

DRUGS (2)
  1. ABROCITINIB [Suspect]
     Active Substance: ABROCITINIB
     Indication: Dermatitis atopic
     Dosage: 200 MG, PER DAY (2 CAPSULES PER DAY)
     Route: 048
     Dates: start: 20190829, end: 20220820
  2. ETHINYL ESTRADIOL [Concomitant]
     Active Substance: ETHINYL ESTRADIOL
     Indication: Contraception
     Dosage: 30 MG, 1X/DAY
     Route: 048
     Dates: start: 201809, end: 20220818

REACTIONS (1)
  - Abortion missed [Recovered/Resolved]

NARRATIVE: CASE EVENT DATE: 20220927
